FAERS Safety Report 13504443 (Version 1)
Quarter: 2017Q2

REPORT INFORMATION
  Report Type: Report from Study
  Country: JP (occurrence: JP)
  Receive Date: 20170502
  Receipt Date: 20170502
  Transmission Date: 20170830
  Serious: Yes (Other)
  Sender: FDA-Public Use
  Company Number: JP-MYLANLABS-2017M1026420

PATIENT

DRUGS (2)
  1. DOCETAXEL. [Suspect]
     Active Substance: DOCETAXEL
     Indication: GLOTTIS CARCINOMA
     Dosage: WEEKLY 10MG/M2
     Route: 065
  2. CISPLATIN. [Suspect]
     Active Substance: CISPLATIN
     Indication: GLOTTIS CARCINOMA
     Dosage: DAILY 6MG/M2, FIVE TIMES A WEEK
     Route: 065

REACTIONS (1)
  - Radiation mucositis [Unknown]
